FAERS Safety Report 6649147-X (Version None)
Quarter: 2010Q1

REPORT INFORMATION
  Report Type: 
  Country: None (occurrence: None)
  Receive Date: 20100324
  Receipt Date: 20100319
  Transmission Date: 20100710
  Serious: Yes (Life-Threatening, Hospitalization, Other)
  Sender: FDA-Public Use
  Company Number: A0832877A

PATIENT
  Age: 57 Year
  Sex: Male
  Weight: 90.5 kg

DRUGS (3)
  1. LEUKERAN [Suspect]
     Dosage: 2MG UNKNOWN
     Route: 048
     Dates: start: 20081001
  2. TREXIMET [Suspect]
     Indication: MIGRAINE
     Dosage: 1TAB AS REQUIRED
     Route: 048
     Dates: start: 20081101, end: 20090130
  3. VICODIN [Concomitant]

REACTIONS (9)
  - BRAIN OEDEMA [None]
  - DIZZINESS [None]
  - DRUG EFFECT DECREASED [None]
  - EYE SWELLING [None]
  - INFECTION [None]
  - LOCAL SWELLING [None]
  - MENINGITIS CRYPTOCOCCAL [None]
  - NASOPHARYNGITIS [None]
  - NAUSEA [None]
